FAERS Safety Report 6878099-2 (Version None)
Quarter: 2010Q2

REPORT INFORMATION
  Report Type: 
  Country: None (occurrence: None)
  Receive Date: 20100616
  Receipt Date: 20100219
  Transmission Date: 20101027
  Serious: No
  Sender: FDA-Public Use
  Company Number: DSA_42655_2010

PATIENT
  Sex: Male

DRUGS (1)
  1. XENAZINE [Suspect]
     Indication: HUNTINGTON'S CHOREA
     Dosage: 75 MG, PATIENT TAKES THREE 12.5 MG TABLETS TWICE A DAY FOR TOTAL DAILY DOSE OF 75 MG ORAL
     Route: 048
     Dates: start: 20091208

REACTIONS (2)
  - ARTHRALGIA [None]
  - RASH MACULAR [None]
